FAERS Safety Report 23220532 (Version 2)
Quarter: 2023Q4

REPORT INFORMATION
  Report Type: Spontaneous
  Country: DE (occurrence: DE)
  Receive Date: 20231123
  Receipt Date: 20231214
  Transmission Date: 20240110
  Serious: Yes (Life-Threatening, Other)
  Sender: FDA-Public Use
  Company Number: DE-BAXTER-2023BAX035924

PATIENT
  Age: 0 Year
  Sex: Male
  Weight: 1.03 kg

DRUGS (5)
  1. AMINO ACIDS\DEXTROSE\ELECTROLYTES NOS\SOYBEAN OIL [Suspect]
     Active Substance: AMINO ACIDS\DEXTROSE\ELECTROLYTES NOS\SOYBEAN OIL
     Indication: Parenteral nutrition
     Dosage: 4.4 ML (MILLILITRE) PER HR (HOUR) VIA PREMICATH 20 CM (CENTIMETER) STARTED AT 18:00 HOURS
     Route: 042
     Dates: start: 20231029, end: 20231030
  2. WATER [Suspect]
     Active Substance: WATER
     Dosage: 106 ML AT AN UNSPECIFIED FREQUENCY, STARTED AT 18:00 HOURS
     Route: 065
     Dates: start: 20231029, end: 20231030
  3. HEPARIN [Suspect]
     Active Substance: HEPARIN SODIUM
     Indication: Drug therapy
     Dosage: 400 IU AT AN UNSPECIFIED FREQUENCY VIA FETTFILTER 1.2 UM (MICROMETER), STARTED AT 18:00 HOURS
     Route: 065
     Dates: start: 20231029, end: 20231030
  4. HEPARIN [Suspect]
     Active Substance: HEPARIN SODIUM
     Dosage: UNK
     Route: 065
     Dates: start: 20231030, end: 20231106
  5. CAFFEINE CITRATE [Suspect]
     Active Substance: CAFFEINE CITRATE
     Dosage: ONCE DAILY AT 8.00, 10 MG/KG/D
     Route: 042
     Dates: start: 202310

REACTIONS (7)
  - Bradycardia [Recovered/Resolved]
  - Arrhythmia [Recovered/Resolved]
  - Cardiac failure [Unknown]
  - Catheter site erythema [Unknown]
  - Catheter site swelling [Unknown]
  - Product deposit [Unknown]
  - Poor quality product administered [Unknown]

NARRATIVE: CASE EVENT DATE: 20231029
